FAERS Safety Report 17251093 (Version 3)
Quarter: 2020Q1

REPORT INFORMATION
  Report Type: Spontaneous
  Country: MX (occurrence: MX)
  Receive Date: 20200109
  Receipt Date: 20200330
  Transmission Date: 20200409
  Serious: Yes (Other)
  Sender: FDA-Public Use
  Company Number: MX-ACCORD-168921

PATIENT
  Age: 58 Year
  Sex: Male
  Weight: 63 kg

DRUGS (4)
  1. PREDNISONE. [Suspect]
     Active Substance: PREDNISONE
     Indication: IMMUNOSUPPRESSION
     Dosage: 5 MG DAILY
     Route: 048
     Dates: start: 201205
  2. TACROLIMUS. [Suspect]
     Active Substance: TACROLIMUS
     Indication: IMMUNOSUPPRESSION
     Dosage: 2 MG EVERY 12 HOURS AT SERUM LEVELS OF 7 NG/ML (ORAL)
     Route: 061
     Dates: start: 201205
  3. MYCOPHENOLIC ACID. [Suspect]
     Active Substance: MYCOPHENOLIC ACID
     Indication: IMMUNOSUPPRESSION
     Dosage: FOR 3 YEARS
     Dates: start: 201205, end: 2015
  4. SIROLIMUS. [Suspect]
     Active Substance: SIROLIMUS
     Indication: IMMUNOSUPPRESSION
     Dosage: 2 MG EVERY 24 HOURS,SERUM LEVELS: 7 NG/ML
     Route: 048
     Dates: start: 2015

REACTIONS (3)
  - Hypertension [Recovering/Resolving]
  - Hypertriglyceridaemia [Recovered/Resolved]
  - Arterial stenosis [Recovered/Resolved]

NARRATIVE: CASE EVENT DATE: 2014
